FAERS Safety Report 5378419-4 (Version None)
Quarter: 2007Q3

REPORT INFORMATION
  Report Type: 
  Country: None (occurrence: None)
  Receive Date: 20070702
  Receipt Date: 20070702
  Transmission Date: 20080115
  Serious: Yes (Hospitalization)
  Sender: FDA-Public Use
  Company Number: None

PATIENT
  Age: 65 Year
  Sex: Male

DRUGS (2)
  1. PHENYTOIN [Suspect]
     Indication: CONVULSION
     Dosage: 500MG EVERY DAY PO
     Route: 048
     Dates: start: 20070421, end: 20070602
  2. DIVALPROEX SODIUM [Suspect]
     Dosage: 5000MG EVERY DAY PO
     Route: 048

REACTIONS (3)
  - ASTHENIA [None]
  - CONVULSION [None]
  - COORDINATION ABNORMAL [None]
